FAERS Safety Report 13678657 (Version 1)
Quarter: 2017Q2

REPORT INFORMATION
  Report Type: Spontaneous
  Country: US (occurrence: US)
  Receive Date: 20170622
  Receipt Date: 20170622
  Transmission Date: 20170830
  Serious: No
  Sender: FDA-Public Use
  Company Number: US-SA-2016SA177560

PATIENT
  Age: 34 Year
  Sex: Female
  Weight: 74.84 kg

DRUGS (9)
  1. CEREZYME [Suspect]
     Active Substance: IMIGLUCERASE
     Indication: FABRY^S DISEASE
     Dosage: DOSE:38.14 UNIT(S)/KILOGRAM BODYWEIGHT
     Route: 042
     Dates: start: 20100217
  2. NORMAL SALINE [Concomitant]
     Active Substance: SODIUM CHLORIDE
     Route: 042
     Dates: start: 20160614
  3. PRENATAL [Concomitant]
     Active Substance: VITAMINS
     Route: 048
     Dates: start: 20160408
  4. CYMBALTA [Concomitant]
     Active Substance: DULOXETINE HYDROCHLORIDE
     Route: 048
     Dates: start: 20130109
  5. DIPHENHYDRAMINE. [Concomitant]
     Active Substance: DIPHENHYDRAMINE
     Dosage: DOSE:50 MILLIGRAM(S)/MILLILITRE
     Route: 042
     Dates: start: 20160614
  6. RANITIDINE. [Concomitant]
     Active Substance: RANITIDINE
     Dosage: DOSE:25 MILLIGRAM(S)/MILLILITRE
     Route: 042
     Dates: start: 20160614
  7. CEREZYME [Suspect]
     Active Substance: IMIGLUCERASE
     Indication: FABRY^S DISEASE
     Dosage: DOSE:38.14 UNIT(S)/KILOGRAM BODYWEIGHT
     Route: 042
     Dates: start: 20100217
  8. METHYLPREDNISOLONE. [Concomitant]
     Active Substance: METHYLPREDNISOLONE
     Route: 042
     Dates: start: 20160614
  9. EPIPEN [Concomitant]
     Active Substance: EPINEPHRINE
     Dates: start: 20160614

REACTIONS (1)
  - Exposure during pregnancy [Unknown]
